FAERS Safety Report 12056911 (Version 1)
Quarter: 2016Q1

REPORT INFORMATION
  Report Type: Spontaneous
  Country: PL (occurrence: PL)
  Receive Date: 20160209
  Receipt Date: 20160209
  Transmission Date: 20160526
  Serious: Yes (Other)
  Sender: FDA-Public Use
  Company Number: PL-ELI_LILLY_AND_COMPANY-PL201602002171

PATIENT
  Age: 40 Year
  Sex: Male

DRUGS (3)
  1. GEMCITABINE HYDROCHLORIDE. [Suspect]
     Active Substance: GEMCITABINE HYDROCHLORIDE
     Dosage: 1000 MG/M2, OTHER
     Dates: start: 201204
  2. ERLOTINIB [Suspect]
     Active Substance: ERLOTINIB
     Indication: PANCREATIC CARCINOMA
     Dosage: 100 MG, QD
     Route: 065
     Dates: start: 201109
  3. GEMCITABINE HYDROCHLORIDE. [Suspect]
     Active Substance: GEMCITABINE HYDROCHLORIDE
     Indication: PANCREATIC CARCINOMA
     Dosage: 1000 MG/M2, WEEKLY (1/W)
     Route: 042
     Dates: start: 201109, end: 201204

REACTIONS (6)
  - Venous thrombosis [Unknown]
  - Rash [Unknown]
  - Leukopenia [Unknown]
  - Oesophageal varices haemorrhage [Unknown]
  - Portal hypertension [Unknown]
  - Neutropenia [Unknown]

NARRATIVE: CASE EVENT DATE: 201204
